FAERS Safety Report 10502187 (Version 4)
Quarter: 2015Q1

REPORT INFORMATION
  Report Type: Spontaneous
  Country: US (occurrence: US)
  Receive Date: 20141007
  Receipt Date: 20150105
  Transmission Date: 20150720
  Serious: Yes (Hospitalization)
  Sender: FDA-Public Use
  Company Number: US-PFIZER INC-2014273382

PATIENT
  Age: 68 Year
  Sex: Female

DRUGS (39)
  1. ARAVA [Suspect]
     Active Substance: LEFLUNOMIDE
     Dosage: 20 MG, 1X/DAY FOR 90 DAYS
     Route: 048
     Dates: start: 20141216
  2. HYDROXYCHLOROQUINE SULFATE. [Concomitant]
     Active Substance: HYDROXYCHLOROQUINE SULFATE
     Indication: RHEUMATOID ARTHRITIS
     Dosage: 2 TABLETS EVERY DAY
     Route: 048
     Dates: start: 20140904
  3. PLAQUENIL [Concomitant]
     Active Substance: HYDROXYCHLOROQUINE SULFATE
     Indication: RHEUMATOID ARTHRITIS
     Dosage: 200 MG, 2X/DAY
     Route: 048
  4. PREDNISONE. [Concomitant]
     Active Substance: PREDNISONE
     Dosage: 20 MG ONCE DAILY FOR A WEEK
     Route: 048
     Dates: start: 20141216
  5. ALBUTEROL SULFATE HFA [Concomitant]
     Dosage: 90 MCG, AS NEEDED (INHALE 2 PUFF BY INHALATION ROUTE EVERY 4 - 6 HOURS AS NEEDED)
     Route: 055
  6. CALCIUM 600+D3 [Concomitant]
     Active Substance: CALCIUM CARBONATE\VITAMIN D
     Dosage: 600 MG CALCIUM-200 UNIT CAPLET, TAKE 1-2 EVERY DAY
     Route: 048
  7. OMEPRAZOLE DR [Concomitant]
     Active Substance: OMEPRAZOLE
     Dosage: 1 CAPSULE 20 MG EVERY DAY BEFORE A MEAL
     Route: 048
  8. NORCO [Concomitant]
     Active Substance: ACETAMINOPHEN\HYDROCODONE BITARTRATE
     Indication: PAIN
     Dosage: 1-1.5 TABLET THRICE DAILY AS NEEDED
     Route: 048
     Dates: start: 20140819
  9. CYMBALTA [Concomitant]
     Active Substance: DULOXETINE HYDROCHLORIDE
     Dosage: ONE CAPSULE (30 MG) EVERY DAY
     Route: 048
     Dates: start: 20120816
  10. LEFLUNOMIDE. [Concomitant]
     Active Substance: LEFLUNOMIDE
     Dosage: ONE TABLET 20 MG EVERY DAY
     Route: 048
     Dates: start: 20140808
  11. XELJANZ [Suspect]
     Active Substance: TOFACITINIB CITRATE
     Dosage: 5 MG, 2X/DAY
     Route: 048
     Dates: start: 20140805, end: 20140925
  12. DULERA [Concomitant]
     Active Substance: FORMOTEROL FUMARATE DIHYDRATE\MOMETASONE FUROATE
     Dosage: INHALE 2 PUFFS 2 TIMES EVERY DAY IN THE MORNING AND EVENING
     Route: 055
     Dates: start: 20130411, end: 20141216
  13. MICARDIS [Concomitant]
     Active Substance: TELMISARTAN
     Dosage: 80 MG, DAILY (EVERY DAY)
     Route: 048
     Dates: end: 20141216
  14. POTASSIUM CL ER [Concomitant]
     Dosage: 10 MEQ 1 CAPSULE EVERY DAY WITH FOOD
     Route: 048
  15. REQUIP [Concomitant]
     Active Substance: ROPINIROLE HYDROCHLORIDE
     Dosage: 1/2 TABLET 0.5 MG THRICE DAILY
     Route: 048
  16. CARAFATE [Concomitant]
     Active Substance: SUCRALFATE
     Dosage: 1 G, 4X/DAY
  17. FLUTICASONE PROP 50MCG SPRAY [Concomitant]
     Dosage: 50 MCG
  18. HYDROCODON ACETAMINOPHEN [Concomitant]
     Dosage: UNK (5-300)
  19. XELJANZ [Suspect]
     Active Substance: TOFACITINIB CITRATE
     Indication: RHEUMATOID ARTHRITIS
     Dosage: 5 MG, 2X/DAY
     Route: 048
     Dates: start: 20140724
  20. ZOFRAN [Concomitant]
     Active Substance: ONDANSETRON HYDROCHLORIDE
     Indication: NAUSEA
     Dosage: TAKE 1 TABLET 8 MG EVERY 12 HOURS
     Route: 048
     Dates: start: 20140916
  21. SPIRIVA [Concomitant]
     Active Substance: TIOTROPIUM BROMIDE MONOHYDRATE
     Dosage: INHALE 1 CAPSULE (18MCG) BY INHALATION ROUTE EVERY DAY
     Route: 055
  22. ARAVA [Suspect]
     Active Substance: LEFLUNOMIDE
     Indication: RHEUMATOID ARTHRITIS
     Dosage: 20 MG, 1X/DAY (ONCE AT NIGHT)
     Dates: start: 20141106, end: 20141216
  23. ZOFRAN [Concomitant]
     Active Substance: ONDANSETRON HYDROCHLORIDE
     Dosage: 8 MG, AS NEEDED (Q6H)
     Dates: start: 20140916
  24. PREDNISONE. [Concomitant]
     Active Substance: PREDNISONE
     Indication: RHEUMATOID ARTHRITIS
     Dosage: 3 MG, 1X/DAY
     Route: 048
     Dates: start: 20140606
  25. VOLTAREN [Concomitant]
     Active Substance: DICLOFENAC SODIUM
     Dosage: 2 - 4 G 4 TIMES EVERY DAY TO THE AFFECTED AREA
     Route: 061
     Dates: start: 20140529
  26. ECONAZOLE [Concomitant]
     Active Substance: ECONAZOLE
     Dosage: 1% CREAM, 2 TIMES EVERY DAY TO THE AFFECTED AND SURROUNDING AREAS OF SKIN
     Route: 061
     Dates: end: 20141216
  27. TRAZODONE [Concomitant]
     Active Substance: TRAZODONE HYDROCHLORIDE
     Dosage: 1 TABLET (100 MG)
     Route: 048
  28. NORCO [Concomitant]
     Active Substance: ACETAMINOPHEN\HYDROCODONE BITARTRATE
     Dosage: 1-1.5 TABLET THRICE DAILY AS NEEDED
     Route: 048
     Dates: start: 20141106
  29. XELJANZ [Suspect]
     Active Substance: TOFACITINIB CITRATE
     Dosage: 5 MG, 2X/DAY
     Route: 048
     Dates: start: 20141010
  30. PREDNISONE. [Concomitant]
     Active Substance: PREDNISONE
     Dosage: 15 MG ONCE DAILY FOR A WEEK
     Route: 048
  31. MTX [Concomitant]
     Active Substance: METHOTREXATE SODIUM
     Dosage: UNK
     Route: 058
  32. CHOLESTYRAMINE. [Concomitant]
     Active Substance: CHOLESTYRAMINE
     Dosage: 8 G, 3X/DAY (3X DAILY X 11 DAYS)
  33. ALL DAY ALLERGY [Concomitant]
     Active Substance: CETIRIZINE HYDROCHLORIDE
     Dosage: 10 MG, 1X/DAY (EVERY DAY)
     Route: 048
     Dates: end: 20141216
  34. ASTELIN [Concomitant]
     Active Substance: AZELASTINE HYDROCHLORIDE
     Dosage: 137 MCG
  35. ECONAZOLE NITRATE. [Concomitant]
     Active Substance: ECONAZOLE NITRATE
     Dosage: 1% CREAM
  36. TIZANIDINE HCL [Concomitant]
     Active Substance: TIZANIDINE HYDROCHLORIDE
     Dosage: 4 MG, 3X/DAY
     Route: 048
     Dates: start: 20140717
  37. PREDNISONE. [Concomitant]
     Active Substance: PREDNISONE
     Dosage: 10 MG, DAILY
     Route: 048
  38. LEVOTHYROXINE [Concomitant]
     Active Substance: LEVOTHYROXINE
     Dosage: 1 DF, DAILY (100MCG, EVERY DAY
     Route: 048
  39. CYANOCOBALAMIN. [Concomitant]
     Active Substance: CYANOCOBALAMIN
     Dosage: INJECT 1 MILLILITER (1000MCG) EVERY MONTH
     Route: 058

REACTIONS (26)
  - Abdominal pain [Unknown]
  - Arthralgia [Unknown]
  - Malnutrition [Recovering/Resolving]
  - Gastric disorder [Unknown]
  - Haemorrhoids [Unknown]
  - Anaemia [Recovering/Resolving]
  - Back pain [Unknown]
  - Pyrexia [Unknown]
  - Large intestine polyp [Unknown]
  - Disease progression [Recovering/Resolving]
  - Constipation [Recovering/Resolving]
  - Neck pain [Unknown]
  - Gastrointestinal disorder [Unknown]
  - Dyspnoea [Unknown]
  - Increased tendency to bruise [Unknown]
  - Memory impairment [Unknown]
  - Gastritis [Recovering/Resolving]
  - Diverticulum [Unknown]
  - Weight decreased [Recovering/Resolving]
  - Vomiting [Recovering/Resolving]
  - Fatigue [Unknown]
  - Joint stiffness [Unknown]
  - Chills [Unknown]
  - Rhinorrhoea [Unknown]
  - Nausea [Recovering/Resolving]
  - Disturbance in attention [Unknown]

NARRATIVE: CASE EVENT DATE: 201407
